FAERS Safety Report 6177946-X (Version None)
Quarter: 2009Q2

REPORT INFORMATION
  Report Type: 
  Country: None (occurrence: None)
  Receive Date: 20090504
  Receipt Date: 20090422
  Transmission Date: 20091009
  Serious: Yes (Hospitalization, Other)
  Sender: FDA-Public Use
  Company Number: US-MERCK-0804USA04889

PATIENT
  Age: 88 Year
  Sex: Female
  Weight: 65 kg

DRUGS (4)
  1. FOSAMAX [Suspect]
     Indication: HIP FRACTURE
     Route: 048
     Dates: start: 20011101, end: 20060406
  2. FOSAMAX [Suspect]
     Route: 048
     Dates: start: 20011103
  3. FOSAMAX [Suspect]
     Indication: OSTEOPOROSIS
     Route: 048
     Dates: start: 20011101, end: 20060406
  4. FOSAMAX [Suspect]
     Route: 048
     Dates: start: 20011103

REACTIONS (46)
  - ABDOMINAL PAIN UPPER [None]
  - AEROPHAGIA [None]
  - ANXIETY [None]
  - ARTHRALGIA [None]
  - ASTHENIA [None]
  - BUNDLE BRANCH BLOCK RIGHT [None]
  - CARDIAC FAILURE CONGESTIVE [None]
  - CARDIOMEGALY [None]
  - CHEST PAIN [None]
  - CHOKING [None]
  - CHOLECYSTITIS ACUTE [None]
  - CONFUSIONAL STATE [None]
  - DEMENTIA [None]
  - DENTAL CARIES [None]
  - DEPRESSION [None]
  - DIVERTICULUM INTESTINAL [None]
  - DYSPHAGIA [None]
  - DYSPNOEA [None]
  - EPISTAXIS [None]
  - ERUCTATION [None]
  - EXCORIATION [None]
  - FALL [None]
  - FASCIITIS [None]
  - FEAR [None]
  - FUNGAL INFECTION [None]
  - GASTRITIS [None]
  - GASTROOESOPHAGEAL REFLUX DISEASE [None]
  - HAEMORRHOIDAL HAEMORRHAGE [None]
  - HIATUS HERNIA [None]
  - HYPERTENSION [None]
  - HYPONATRAEMIA [None]
  - HYPOTENSION [None]
  - HYPOVOLAEMIA [None]
  - JAW DISORDER [None]
  - JOINT SPRAIN [None]
  - MUSCLE STRAIN [None]
  - OESOPHAGEAL CANDIDIASIS [None]
  - PAIN [None]
  - PAIN IN JAW [None]
  - PNEUMONIA [None]
  - PULMONARY EMBOLISM [None]
  - RHINITIS ALLERGIC [None]
  - SINUSITIS [None]
  - SOMNOLENCE [None]
  - SPINAL COMPRESSION FRACTURE [None]
  - THROMBOCYTOPENIA [None]
